FAERS Safety Report 18266444 (Version 1)
Quarter: 2020Q3

REPORT INFORMATION
  Report Type: Spontaneous
  Country: CN (occurrence: CN)
  Receive Date: 20200915
  Receipt Date: 20200915
  Transmission Date: 20201103
  Serious: Yes (Hospitalization)
  Sender: FDA-Public Use
  Company Number: CN-BAYER-2020-194153

PATIENT
  Age: 68 Year
  Sex: Female
  Weight: 60 kg

DRUGS (3)
  1. NEXAVAR [Suspect]
     Active Substance: SORAFENIB
     Indication: NEOPLASM
     Dosage: 0.2 G, HS
     Route: 048
     Dates: start: 20200628
  2. SINTILIMAB. [Concomitant]
     Active Substance: SINTILIMAB
  3. NEXAVAR [Suspect]
     Active Substance: SORAFENIB
     Indication: NEOPLASM
     Dosage: 0.4 G, OM
     Route: 048
     Dates: start: 20200628

REACTIONS (3)
  - Dysphonia [Not Recovered/Not Resolved]
  - Off label use [None]
  - Hospitalisation [None]

NARRATIVE: CASE EVENT DATE: 20200628
